FAERS Safety Report 6982832-9 (Version None)
Quarter: 2010Q3

REPORT INFORMATION
  Report Type: 
  Country: None (occurrence: None)
  Receive Date: 20100914
  Receipt Date: 20100416
  Transmission Date: 20110219
  Serious: Yes (Other)
  Sender: FDA-Public Use
  Company Number: US-PFIZER INC-2010049134

PATIENT
  Sex: Female
  Weight: 68.027 kg

DRUGS (1)
  1. LYRICA [Suspect]
     Dosage: 50 MG, 3X/DAY
     Dates: start: 20100401

REACTIONS (4)
  - DYSPNOEA EXERTIONAL [None]
  - IRRITABILITY [None]
  - SWELLING FACE [None]
  - WEIGHT INCREASED [None]
